FAERS Safety Report 8871502 (Version 1)
Quarter: 2012Q4

REPORT INFORMATION
  Report Type: 
  Country: US (occurrence: US)
  Receive Date: 20121023
  Receipt Date: 20121023
  Transmission Date: 20130627
  Serious: Yes (Other)
  Sender: FDA-Public Use
  Company Number: CHPA2012US021916

PATIENT
  Age: 69 Year
  Sex: Female

DRUGS (5)
  1. BENEFIBER W/ WHEAT DEXTRIN [Suspect]
     Indication: FAECES HARD
     Dosage: 3 TSP, QD
     Route: 048
     Dates: start: 2006
  2. PLAVIX [Concomitant]
     Dosage: Unk, Unk
     Route: 048
  3. ANTIHYPERTENSIVES [Concomitant]
     Dosage: Unk, Unk
     Route: 048
  4. VITAMIN D [Concomitant]
     Dosage: Unk, Unk
     Route: 048
  5. BABY ASPIRIN [Concomitant]
     Dosage: Unk, Unk
     Route: 048

REACTIONS (3)
  - Herpes zoster [Recovered/Resolved]
  - Off label use [Unknown]
  - Incorrect dose administered [Unknown]
